FAERS Safety Report 22538342 (Version 2)
Quarter: 2023Q2

REPORT INFORMATION
  Report Type: Spontaneous
  Country: ES (occurrence: ES)
  Receive Date: 20230609
  Receipt Date: 20230615
  Transmission Date: 20230722
  Serious: Yes (Disabling, Other)
  Sender: FDA-Public Use
  Company Number: ES-CELLTRION INC.-2023ES011602

PATIENT

DRUGS (5)
  1. INFLIXIMAB [Suspect]
     Active Substance: INFLIXIMAB
     Indication: Crohn^s disease
     Dosage: 100 MILLIGRAM EVERY 2 MONTH / IN THE HOSPITAL, 2 LOADING DOSES
     Route: 042
     Dates: start: 202302
  2. INFLIXIMAB [Suspect]
     Active Substance: INFLIXIMAB
     Dosage: 100 MILLIGRAM EVERY 2 MONTH / IN THE HOSPITAL, 2 LOADING DOSES
     Route: 042
  3. INFLIXIMAB [Suspect]
     Active Substance: INFLIXIMAB
     Indication: Crohn^s disease
     Dosage: 120 MILLIGRAM EVERY 2 WEEK (ONE AT THE HOSPITAL AND ANOTHER ONE AT HOME)
     Route: 058
  4. INFLIXIMAB [Suspect]
     Active Substance: INFLIXIMAB
     Dosage: 120 MILLIGRAM EVERY 2 WEEK (ONE AT THE HOSPITAL AND ANOTHER ONE AT HOME)
     Route: 058
     Dates: start: 202305
  5. CANDESARTAN [Concomitant]
     Active Substance: CANDESARTAN
     Indication: Hypertension
     Dosage: 8 MILLIGRAM
     Route: 048
     Dates: start: 2021

REACTIONS (9)
  - Ototoxicity [Not Recovered/Not Resolved]
  - Tinnitus [Not Recovered/Not Resolved]
  - Synovitis [Not Recovered/Not Resolved]
  - Nausea [Recovered/Resolved]
  - Vertigo [Recovered/Resolved]
  - Dizziness [Recovered/Resolved]
  - Haematoma [Recovered/Resolved]
  - Arthralgia [Recovered/Resolved]
  - Rash [Recovered/Resolved]

NARRATIVE: CASE EVENT DATE: 20230201
